FAERS Safety Report 4343142-1 (Version None)
Quarter: 2004Q2

REPORT INFORMATION
  Report Type: 
  Country: None (occurrence: None)
  Receive Date: 20040419
  Receipt Date: 20040407
  Transmission Date: 20050107
  Serious: Yes (Hospitalization)
  Sender: FDA-Public Use
  Company Number: A02200401262

PATIENT
  Age: 20 Year
  Sex: Female

DRUGS (5)
  1. STILNOX- (ZOLPIDEM) - TABLET- 10 MG [Suspect]
     Dosage: 10 MG QD, ORAL
     Route: 048
     Dates: start: 20030101
  2. MIANSERIN HYDROCHLORIDE - TABLET - [Suspect]
     Dosage: 20 MG QD, ORAL
     Route: 048
     Dates: start: 20030101
  3. ZOLOFT [Suspect]
     Dosage: 50 MG OD, ORAL
     Route: 048
     Dates: start: 20030101
  4. RISPERDAL - (RISPERIDONE) - TABELT - 1 MG/TABLET - 1 MG [Suspect]
     Dosage: 2 MG/1 MG, ORAL
     Route: 048
     Dates: start: 20040313, end: 20040313
  5. RISPERDAL - (RISPERIDONE) - TABELT - 1 MG/TABLET - 1 MG [Suspect]
     Dosage: 2 MG/1 MG, ORAL
     Route: 048
     Dates: start: 20030101, end: 20040313

REACTIONS (4)
  - FACE OEDEMA [None]
  - OEDEMA PERIPHERAL [None]
  - PERICARDIAL EFFUSION [None]
  - SWELLING FACE [None]
